FAERS Safety Report 23027278 (Version 1)
Quarter: 2023Q4

REPORT INFORMATION
  Report Type: Spontaneous
  Country: US (occurrence: US)
  Receive Date: 20231004
  Receipt Date: 20231004
  Transmission Date: 20240109
  Serious: Yes (Hospitalization, Other)
  Sender: FDA-Public Use
  Company Number: US-AMGEN-USASP2023172944

PATIENT
  Age: 23 Year
  Sex: Female
  Weight: 136.05 kg

DRUGS (6)
  1. AIMOVIG [Suspect]
     Active Substance: ERENUMAB-AOOE
     Indication: Migraine
     Dosage: UNK
     Route: 065
  2. LEVOTHYROXINE [Concomitant]
     Active Substance: LEVOTHYROXINE
     Indication: Hypothyroidism
     Dosage: UNK, QD
     Route: 065
  3. DULOXETINE [Concomitant]
     Active Substance: DULOXETINE
     Dosage: UNK UNK, QD
     Route: 065
  4. LAMOTRIGINE [Concomitant]
     Active Substance: LAMOTRIGINE
     Indication: Bipolar disorder
     Dosage: UNK UNK, BID
  5. GLYCOPYRROLATE [Concomitant]
     Active Substance: GLYCOPYRROLATE
     Indication: Hyperhidrosis
     Dosage: 2 MILLIGRAM, BID
  6. CANNABIS SATIVA SUBSP. INDICA TOP [Concomitant]
     Active Substance: CANNABIS SATIVA SUBSP. INDICA TOP
     Indication: Discomfort
     Dosage: UNK
     Route: 065

REACTIONS (18)
  - Suicidal ideation [Unknown]
  - COVID-19 [Unknown]
  - Back pain [Unknown]
  - Injury [Unknown]
  - Mental disorder [Unknown]
  - Social problem [Unknown]
  - Fatigue [Unknown]
  - Somnolence [Unknown]
  - Peripheral swelling [Unknown]
  - Myalgia [Unknown]
  - Arthralgia [Unknown]
  - Chest discomfort [Unknown]
  - Dysstasia [Unknown]
  - Neck pain [Unknown]
  - Endometriosis [Unknown]
  - Hysterectomy [Unknown]
  - Adenoidectomy [Unknown]
  - Pain [Unknown]

NARRATIVE: CASE EVENT DATE: 20210721
